FAERS Safety Report 25575839 (Version 1)
Quarter: 2025Q3

REPORT INFORMATION
  Report Type: Report from Study
  Country: US (occurrence: US)
  Receive Date: 20250718
  Receipt Date: 20250718
  Transmission Date: 20251021
  Serious: Yes (Other)
  Sender: TAKEDA
  Company Number: US-TAKEDA-US202009549

PATIENT
  Sex: Female

DRUGS (1)
  1. HUMAN IMMUNOGLOBULIN G\HYALURONIDASE RECOMBINANT HUMAN [Suspect]
     Active Substance: HUMAN IMMUNOGLOBULIN G\HYALURONIDASE (HUMAN RECOMBINANT)
     Indication: Primary immunodeficiency syndrome

REACTIONS (7)
  - Systemic lupus erythematosus [Unknown]
  - Energy increased [Unknown]
  - Hypersensitivity [Unknown]
  - Influenza like illness [Unknown]
  - Headache [Unknown]
  - Sinusitis [Unknown]
  - Ear infection [Unknown]
